FAERS Safety Report 5302481-8 (Version None)
Quarter: 2007Q2

REPORT INFORMATION
  Report Type: 
  Country: None (occurrence: None)
  Receive Date: 20070412
  Receipt Date: 20070329
  Transmission Date: 20071010
  Serious: Yes (Other)
  Sender: FDA-Public Use
  Company Number: 2007SP006192

PATIENT
  Age: 58 Year
  Sex: Male

DRUGS (4)
  1. PEG-INTRON [Suspect]
     Indication: DISEASE RECURRENCE
     Dosage: 1 MCG/MG/ QW
  2. PEG-INTRON [Suspect]
     Indication: HEPATITIS C
     Dosage: 1 MCG/MG/ QW
  3. REBETOL [Suspect]
     Indication: DISEASE RECURRENCE
     Dosage: QD;
  4. REBETOL [Suspect]
     Indication: HEPATITIS C
     Dosage: QD;

REACTIONS (3)
  - AUTOIMMUNE HEPATITIS [None]
  - AUTOIMMUNE THYROIDITIS [None]
  - COMPLICATIONS OF TRANSPLANTED LIVER [None]
